FAERS Safety Report 12168287 (Version 1)
Quarter: 2016Q1

REPORT INFORMATION
  Report Type: Spontaneous
  Country: US (occurrence: None)
  Receive Date: 20160309
  Receipt Date: 20160309
  Transmission Date: 20160526
  Serious: Yes (Other)
  Sender: FDA-Public Use
  Company Number: None

PATIENT
  Age: 60 Year
  Sex: Female
  Weight: 54.43 kg

DRUGS (25)
  1. MILK THISTLE [Concomitant]
     Active Substance: MILK THISTLE
  2. BILBERRY [Concomitant]
     Active Substance: BILBERRY
  3. VITAMIN C [Concomitant]
     Active Substance: ASCORBIC ACID
  4. SELENIUM [Concomitant]
     Active Substance: SELENIUM
  5. LEVOTHYROXINE. [Concomitant]
     Active Substance: LEVOTHYROXINE
  6. VITAMINS/MINERALS/SUPPLEMENTS [Concomitant]
  7. MAGNESIUM [Concomitant]
     Active Substance: MAGNESIUM
  8. CHOLINE [Concomitant]
     Active Substance: CHOLINE
  9. TRAZODONE [Concomitant]
     Active Substance: TRAZODONE HYDROCHLORIDE
  10. LIOTHYRONINE [Concomitant]
     Active Substance: LIOTHYRONINE
  11. COQ10 [Concomitant]
     Active Substance: UBIDECARENONE
  12. MULTIVITAMIN [Concomitant]
     Active Substance: VITAMINS
  13. TAURINE [Concomitant]
     Active Substance: TAURINE
  14. BORAGE OIL [Concomitant]
     Active Substance: BORAGE OIL
  15. VITAMIN K [Concomitant]
     Active Substance: PHYTONADIONE
  16. APPLE CIDER VINEGAR [Concomitant]
     Active Substance: APPLE CIDER VINEGAR
  17. SEA KELP [Concomitant]
  18. NATURE-THROID [Concomitant]
     Active Substance: THYROID, PORCINE
  19. VITAMIN D [Concomitant]
     Active Substance: CHOLECALCIFEROL
  20. ZINC [Concomitant]
     Active Substance: ZINC\ZINC CHLORIDE
  21. LAMOTRIGINE 200 MG ZYDUS [Suspect]
     Active Substance: LAMOTRIGINE
     Indication: AFFECTIVE DISORDER
     Route: 048
     Dates: start: 201409
  22. FISH OIL [Concomitant]
     Active Substance: FISH OIL
  23. VITAMIN E [Concomitant]
     Active Substance: .ALPHA.-TOCOPHEROL
  24. VITAMIN B COMPLEX [Concomitant]
     Active Substance: CYANOCOBALAMIN\DEXPANTHENOL\NIACINAMIDE\PYRIDOXINE HYDROCHLORIDE\RIBOFLAVIN 5^-PHOSPHATE SODIUM\THIAMINE HYDROCHLORIDE\VITAMIN B COMPLEX
  25. MSM [Concomitant]
     Active Substance: DIMETHYL SULFONE

REACTIONS (6)
  - Urine output decreased [None]
  - Protein total decreased [None]
  - Hepatic enzyme increased [None]
  - Blood creatinine decreased [None]
  - Blood albumin decreased [None]
  - Fluid retention [None]

NARRATIVE: CASE EVENT DATE: 20141015
